FAERS Safety Report 17212414 (Version 2)
Quarter: 2020Q2

REPORT INFORMATION
  Report Type: Spontaneous
  Country: US (occurrence: US)
  Receive Date: 20191230
  Receipt Date: 20200413
  Transmission Date: 20200713
  Serious: No
  Sender: FDA-Public Use
  Company Number: US-ASTRAZENECA-2019SF85698

PATIENT
  Sex: Male
  Weight: 11 kg

DRUGS (1)
  1. SYNAGIS [Suspect]
     Active Substance: PALIVIZUMAB
     Indication: CONGENITAL BRONCHOMALACIA
     Dosage: 15 MG/KG INTO MUSCLE,ONCE A MONTH
     Route: 030

REACTIONS (1)
  - Weight decreased [Unknown]
